FAERS Safety Report 19358887 (Version 1)
Quarter: 2021Q2

REPORT INFORMATION
  Report Type: Spontaneous
  Country: IN (occurrence: IN)
  Receive Date: 20210601
  Receipt Date: 20210601
  Transmission Date: 20210717
  Serious: Yes (Death, Other)
  Sender: FDA-Public Use
  Company Number: IN-TILLOMEDPR-2021-EPL-001714

PATIENT

DRUGS (6)
  1. MYCOPHENOLATE MOFETIL. [Suspect]
     Active Substance: MYCOPHENOLATE MOFETIL
     Indication: RENAL TRANSPLANT
     Dosage: UNK
     Route: 048
     Dates: start: 20171212, end: 20210429
  2. RENTAC [Concomitant]
     Indication: GASTRIC DISORDER
     Dosage: 150 MILLIGRAM MORN AND EVE
     Dates: start: 20171212, end: 20210429
  3. ARKAMIN [Concomitant]
     Indication: HYPERTENSION
     Dosage: 100 MG ?? MORN + ?
     Route: 048
     Dates: start: 20171212, end: 20210429
  4. SEPTRAN [Concomitant]
     Indication: INFECTION
     Dosage: 500 MG? ?? MORN
     Route: 048
     Dates: end: 20210429
  5. VINGRAF [Suspect]
     Active Substance: TACROLIMUS
     Indication: RENAL TRANSPLANT
     Dosage: UNK
     Route: 048
     Dates: start: 20171212, end: 20210429
  6. CALCIUM [Concomitant]
     Active Substance: CALCIUM
     Indication: RENAL TRANSPLANT
     Dosage: 500 MILLIGRAM, MORN
     Route: 048
     Dates: start: 20171212, end: 20210429

REACTIONS (4)
  - Cardiac arrest [Fatal]
  - Lung disorder [Unknown]
  - Pulmonary oedema [Fatal]
  - Renal disorder [Unknown]

NARRATIVE: CASE EVENT DATE: 20210413
